FAERS Safety Report 6146709-3 (Version None)
Quarter: 2009Q2

REPORT INFORMATION
  Report Type: 
  Country: None (occurrence: None)
  Receive Date: 20090407
  Receipt Date: 20090403
  Transmission Date: 20091009
  Serious: Yes (Death, Other)
  Sender: FDA-Public Use
  Company Number: PHEH2009US02759

PATIENT
  Sex: Female

DRUGS (1)
  1. SANDOSTATIN LAR [Suspect]
     Indication: NON-HODGKIN'S LYMPHOMA STAGE IV
     Dosage: 30 MG, UNK
     Dates: start: 20080909

REACTIONS (37)
  - ABDOMINAL DISTENSION [None]
  - ANAEMIA [None]
  - ANORECTAL DISCOMFORT [None]
  - ASCITES [None]
  - BACK PAIN [None]
  - BLOOD ALBUMIN DECREASED [None]
  - BLOOD ALKALINE PHOSPHATASE INCREASED [None]
  - BLOOD MAGNESIUM INCREASED [None]
  - BLOOD SODIUM DECREASED [None]
  - CACHEXIA [None]
  - CHEST DISCOMFORT [None]
  - DISEASE PROGRESSION [None]
  - ENCOPRESIS [None]
  - ERYTHEMA [None]
  - GINGIVAL BLEEDING [None]
  - GROIN PAIN [None]
  - HAEMATOCRIT DECREASED [None]
  - HAEMOGLOBIN DECREASED [None]
  - HEADACHE [None]
  - LYMPHADENOPATHY [None]
  - LYMPHOCYTOSIS [None]
  - MALAISE [None]
  - NEUTROPENIA [None]
  - NON-HODGKIN'S LYMPHOMA STAGE IV [None]
  - OEDEMA PERIPHERAL [None]
  - OROPHARYNGEAL PAIN [None]
  - PAIN IN EXTREMITY [None]
  - PALLOR [None]
  - PARACENTESIS [None]
  - PERINEAL PAIN [None]
  - PLEURAL EFFUSION [None]
  - PROTEIN TOTAL DECREASED [None]
  - PRURITUS [None]
  - SPLENIC INFARCTION [None]
  - THROMBOCYTOPENIA [None]
  - WEIGHT DECREASED [None]
  - WHITE BLOOD CELL COUNT INCREASED [None]
